FAERS Safety Report 12988662 (Version 3)
Quarter: 2016Q4

REPORT INFORMATION
  Report Type: Spontaneous
  Country: AR (occurrence: AR)
  Receive Date: 20161130
  Receipt Date: 20161220
  Transmission Date: 20170207
  Serious: Yes (Other)
  Sender: FDA-Public Use
  Company Number: AR-AMGEN-ARGSP2016168395

PATIENT
  Age: 62 Year
  Sex: Male
  Weight: 100 kg

DRUGS (8)
  1. METHOTREXATE SODIUM. [Suspect]
     Active Substance: METHOTREXATE SODIUM
     Indication: PRODUCT USED FOR UNKNOWN INDICATION
     Dosage: UNK
     Route: 065
  2. AMIODARONE [Suspect]
     Active Substance: AMIODARONE
     Indication: PRODUCT USED FOR UNKNOWN INDICATION
     Dosage: UNK
     Route: 065
  3. CLOPIDOGREL [Concomitant]
     Active Substance: CLOPIDOGREL BISULFATE
     Dosage: UKN
  4. AMIODARONA [Concomitant]
     Active Substance: AMIODARONE
     Dosage: UKN
  5. ENBREL [Suspect]
     Active Substance: ETANERCEPT
     Indication: PSORIATIC ARTHROPATHY
     Dosage: UNK
     Route: 065
  6. CORBIS [Concomitant]
     Dosage: UKN
  7. MINUSLIP [Concomitant]
     Dosage: UKN
  8. PAXON [Concomitant]
     Dosage: UKN

REACTIONS (7)
  - Cough [Unknown]
  - Hiatus hernia [Unknown]
  - Fatigue [Unknown]
  - Pulmonary fibrosis [Unknown]
  - Pain [Unknown]
  - Bronchiectasis [Unknown]
  - Dyspnoea [Recovering/Resolving]

NARRATIVE: CASE EVENT DATE: 201603
